FAERS Safety Report 10251403 (Version 2)
Quarter: 2014Q2

REPORT INFORMATION
  Report Type: Spontaneous
  Country: IT (occurrence: IT)
  Receive Date: 20140623
  Receipt Date: 20140630
  Transmission Date: 20141212
  Serious: Yes (Other)
  Sender: FDA-Public Use
  Company Number: IT-ROCHE-1422237

PATIENT
  Age: 63 Year
  Sex: Male

DRUGS (7)
  1. MABTHERA [Suspect]
     Indication: FOLLICLE CENTRE LYMPHOMA, FOLLICULAR GRADE I, II, III
     Route: 042
     Dates: start: 20101213, end: 20121210
  2. EUTIROX [Concomitant]
     Indication: THYROID NEOPLASM
     Route: 048
  3. ASACOL [Concomitant]
     Indication: COLITIS ULCERATIVE
     Route: 048
  4. CYCLOPHOSPHAMIDE [Concomitant]
  5. IDARUBICIN [Concomitant]
  6. DOXORUBICINE [Concomitant]
  7. PREDNISONE [Concomitant]

REACTIONS (1)
  - Undifferentiated sarcoma [Unknown]
